FAERS Safety Report 9561387 (Version 1)
Quarter: 2013Q3

REPORT INFORMATION
  Report Type: Spontaneous
  Country: US (occurrence: US)
  Receive Date: 20130927
  Receipt Date: 20130927
  Transmission Date: 20140515
  Serious: No
  Sender: FDA-Public Use
  Company Number: US-BIOGENIDEC-2013BI058593

PATIENT
  Age: 62 Year
  Sex: Female

DRUGS (6)
  1. TECFIDERA [Suspect]
     Indication: PRODUCT USED FOR UNKNOWN INDICATION
  2. DULCOLAX [Concomitant]
  3. DETROL [Concomitant]
  4. LAMICTAL [Concomitant]
  5. BONIVA [Concomitant]
  6. LISINOPRIL [Concomitant]

REACTIONS (1)
  - Diarrhoea [Unknown]
